FAERS Safety Report 6402939-4 (Version None)
Quarter: 2009Q4

REPORT INFORMATION
  Report Type: 
  Country: None (occurrence: None)
  Receive Date: 20091014
  Receipt Date: 20091014
  Transmission Date: 20100525
  Serious: Yes (Disabling)
  Sender: FDA-Public Use
  Company Number: None

PATIENT
  Age: 51 Year
  Sex: Female
  Weight: 54.4316 kg

DRUGS (1)
  1. NEURONTIN [Suspect]
     Indication: FIBROMYALGIA
     Dosage: 300 MG QD THEN BID PO
     Route: 048
     Dates: start: 20090501

REACTIONS (7)
  - CONFUSIONAL STATE [None]
  - GLUCOSE TOLERANCE IMPAIRED [None]
  - HYPOAESTHESIA [None]
  - NEURALGIA [None]
  - OEDEMA PERIPHERAL [None]
  - RESTLESS LEGS SYNDROME [None]
  - WEIGHT DECREASED [None]
